FAERS Safety Report 5695553-X (Version None)
Quarter: 2008Q2

REPORT INFORMATION
  Report Type: 
  Country: None (occurrence: None)
  Receive Date: 20080407
  Receipt Date: 20080331
  Transmission Date: 20081010
  Serious: Yes (Other)
  Sender: FDA-Public Use
  Company Number: FR-BRISTOL-MYERS SQUIBB COMPANY-14138721

PATIENT
  Age: 82 Year
  Sex: Male

DRUGS (5)
  1. APROVEL TABS 150 MG [Suspect]
     Indication: CARDIAC FAILURE
     Route: 048
     Dates: start: 20070101
  2. SINTROM [Concomitant]
     Route: 048
  3. LASILIX [Concomitant]
  4. ALDACTONE [Concomitant]
     Route: 048
  5. CARDENSIEL [Concomitant]

REACTIONS (2)
  - BLOOD CREATINE PHOSPHOKINASE INCREASED [None]
  - MUSCULAR WEAKNESS [None]
